FAERS Safety Report 8714133 (Version 3)
Quarter: 2012Q4

REPORT INFORMATION
  Report Type: 
  Country: US (occurrence: US)
  Receive Date: 20120808
  Receipt Date: 20120828
  Transmission Date: 20130627
  Serious: No
  Sender: FDA-Public Use
  Company Number: US-B.I. PHARMACEUTICALS,INC./RIDGEFIELD-2012-BP-17699BP

PATIENT
  Age: 65 None
  Sex: Female
  Weight: 82 kg

DRUGS (5)
  1. SPIRIVA [Suspect]
     Indication: CHRONIC OBSTRUCTIVE PULMONARY DISEASE
     Dosage: 18 mcg
     Route: 055
     Dates: start: 201201
  2. XANAX [Concomitant]
     Indication: ANXIETY
  3. XOPENEX [Concomitant]
     Indication: CHRONIC OBSTRUCTIVE PULMONARY DISEASE
     Dosage: 135 mcg
     Route: 055
  4. ALBUTEROL [Concomitant]
     Indication: DYSPNOEA
     Route: 055
  5. BUDESONIDE [Concomitant]
     Indication: DYSPNOEA
     Dosage: 1 mg
     Route: 055

REACTIONS (4)
  - Therapeutic response decreased [Not Recovered/Not Resolved]
  - Anxiety [Not Recovered/Not Resolved]
  - Therapeutic response decreased [Not Recovered/Not Resolved]
  - Product quality issue [Recovered/Resolved]
